FAERS Safety Report 10033206 (Version 1)
Quarter: 2014Q1

REPORT INFORMATION
  Report Type: Spontaneous
  Country: DE (occurrence: DE)
  Receive Date: 20140324
  Receipt Date: 20140324
  Transmission Date: 20141002
  Serious: Yes (Congenital Anomaly, Other)
  Sender: FDA-Public Use
  Company Number: DE-MYLANLABS-2014S1005647

PATIENT
  Age: 1 Day
  Sex: Male
  Weight: 4.26 kg

DRUGS (5)
  1. SERTRALINE [Suspect]
     Indication: ANXIETY DISORDER
     Dosage: 125 [MG/D (BIS 100 ) ]
     Route: 064
     Dates: start: 20120120, end: 20121015
  2. OPIPRAMOL [Suspect]
     Indication: DEPRESSION
     Dosage: 50 [MG/D ]
     Route: 064
     Dates: start: 20120120
  3. ZOPICLONE [Suspect]
     Indication: SLEEP DISORDER
     Dosage: 7.5 [MG/D ]/ ON DEMAND
     Route: 064
     Dates: start: 20120120
  4. CENTRUM MATERNA [Concomitant]
     Indication: PROPHYLAXIS OF NEURAL TUBE DEFECT
     Dosage: 0.4 [MG/D ]
     Route: 064
     Dates: start: 20120302, end: 20121015
  5. NASENTROPFEN K [Concomitant]
     Indication: SUBSTANCE ABUSER
     Route: 064
     Dates: start: 20120120, end: 20121015

REACTIONS (3)
  - Kidney duplex [Not Recovered/Not Resolved]
  - Neonatal respiratory distress syndrome [Recovered/Resolved]
  - Exposure during pregnancy [Recovered/Resolved]
